FAERS Safety Report 14137026 (Version 5)
Quarter: 2018Q3

REPORT INFORMATION
  Report Type: Report from Study
  Country: US (occurrence: US)
  Receive Date: 20171027
  Receipt Date: 20180719
  Transmission Date: 20181010
  Serious: No
  Sender: FDA-Public Use
  Company Number: US-AMGEN-USASL2017130604

PATIENT
  Age: 69 Year
  Sex: Male
  Weight: 69.4 kg

DRUGS (7)
  1. REPATHA [Suspect]
     Active Substance: EVOLOCUMAB
     Indication: HYPERCHOLESTEROLAEMIA
     Dosage: 140 MG, Q2WK
     Route: 058
     Dates: start: 20170413, end: 2017
  2. ACIPHEX [Concomitant]
     Active Substance: RABEPRAZOLE SODIUM
     Dosage: UNK
  3. REPATHA [Suspect]
     Active Substance: EVOLOCUMAB
     Indication: TYPE IIA HYPERLIPIDAEMIA
  4. NITROLINGUAL [Concomitant]
     Active Substance: NITROGLYCERIN
     Dosage: 400 MUG, AS NECESSARY
  5. FISH OIL [Concomitant]
     Active Substance: FISH OIL
     Dosage: 1 DF, 1,200 MG?144 MG?216 MG
     Route: 048
  6. ASPIR 81 [Concomitant]
     Dosage: 81 MG, 3TIMES WEEKLY
  7. ATENOLOL. [Concomitant]
     Active Substance: ATENOLOL
     Indication: ESSENTIAL HYPERTENSION
     Dosage: 25 MG, UNK

REACTIONS (2)
  - Diarrhoea [Not Recovered/Not Resolved]
  - Gastric disorder [Unknown]

NARRATIVE: CASE EVENT DATE: 201703
